FAERS Safety Report 25836995 (Version 1)
Quarter: 2025Q3

REPORT INFORMATION
  Report Type: Spontaneous
  Country: EU (occurrence: EU)
  Receive Date: 20250923
  Receipt Date: 20250923
  Transmission Date: 20251020
  Serious: Yes (Hospitalization, Other)
  Sender: CARNEGIE PHARMACEUTICALS LLC
  Company Number: EU-CARNEGIE-000076

PATIENT
  Age: 77 Year
  Sex: Female

DRUGS (2)
  1. CEFDITOREN [Concomitant]
     Active Substance: CEFDITOREN
     Indication: Infected bite
     Route: 065
  2. CLINDAMYCIN PHOSPHATE [Suspect]
     Active Substance: CLINDAMYCIN PHOSPHATE
     Indication: Infected bite
     Route: 065

REACTIONS (1)
  - Acute generalised exanthematous pustulosis [Recovered/Resolved]
